FAERS Safety Report 7506997-5 (Version None)
Quarter: 2011Q2

REPORT INFORMATION
  Report Type: 
  Country: None (occurrence: None)
  Receive Date: 20110526
  Receipt Date: 20110105
  Transmission Date: 20111010
  Serious: Yes (Death, Hospitalization)
  Sender: FDA-Public Use
  Company Number: PHHY2011DE01034

PATIENT
  Age: 58 Year

DRUGS (5)
  1. VANCOMYCIN [Suspect]
     Indication: STAPHYLOCOCCAL INFECTION
  2. CIPROFLOXACIN [Suspect]
     Indication: STENOTROPHOMONAS INFECTION
     Dosage: UNK UKN, UNK
  3. COLISTIN SULFATE [Suspect]
     Dosage: UNK UKN, UNK
     Route: 042
  4. IMIPENEM [Suspect]
  5. COTRIM [Suspect]
     Indication: STENOTROPHOMONAS INFECTION
     Dosage: UNK UKN, UNK

REACTIONS (5)
  - DEATH [None]
  - MULTIPLE-DRUG RESISTANCE [None]
  - DRUG INEFFECTIVE [None]
  - DRUG RESISTANCE [None]
  - ACINETOBACTER INFECTION [None]
